FAERS Safety Report 9054098 (Version 1)
Quarter: 2013Q1

REPORT INFORMATION
  Report Type: Spontaneous
  Country: FR (occurrence: FR)
  Receive Date: 20130208
  Receipt Date: 20130208
  Transmission Date: 20140127
  Serious: Yes (Hospitalization, Other)
  Sender: FDA-Public Use
  Company Number: FR-PFIZER INC-2013050932

PATIENT
  Age: 68 Year
  Sex: Male

DRUGS (2)
  1. CORDARONE [Suspect]
     Indication: ARRHYTHMIA SUPRAVENTRICULAR
     Dosage: UNK
     Route: 048
     Dates: start: 20121204, end: 20121208
  2. PRADAXA [Suspect]
     Dosage: UNK
     Route: 048
     Dates: start: 20121112, end: 20121212

REACTIONS (3)
  - Coagulation factor V level decreased [Recovered/Resolved]
  - Hepatocellular injury [Unknown]
  - Blood creatinine increased [Unknown]
